FAERS Safety Report 4414599-2 (Version None)
Quarter: 2004Q3

REPORT INFORMATION
  Report Type: 
  Country: None (occurrence: None)
  Receive Date: 20040729
  Receipt Date: 20040716
  Transmission Date: 20050211
  Serious: Yes (Hospitalization, Other)
  Sender: FDA-Public Use
  Company Number: JP-JNJFOC-20040104961

PATIENT
  Age: 77 Year
  Sex: Male

DRUGS (10)
  1. FENTANYL [Suspect]
     Indication: CANCER PAIN
     Dosage: SEE IMAGE
     Route: 062
     Dates: start: 20031218, end: 20040121
  2. FENTANYL [Suspect]
     Indication: CANCER PAIN
     Dosage: SEE IMAGE
     Route: 062
     Dates: start: 20040121, end: 20040123
  3. FENTANYL [Suspect]
     Indication: CANCER PAIN
     Dosage: SEE IMAGE
     Route: 062
     Dates: start: 20040123, end: 20040607
  4. FENTANYL [Suspect]
     Indication: CANCER PAIN
     Dosage: SEE IMAGE
     Route: 062
     Dates: start: 20040607, end: 20040629
  5. FENTANYL [Suspect]
     Indication: CANCER PAIN
     Dosage: SEE IMAGE
     Route: 062
     Dates: start: 20030629
  6. ROXATIDINE ACETATE HCL [Concomitant]
  7. LACTOBACILLUS CASEI (LACTOBASILUS ACIDOPHILUS) [Concomitant]
  8. MAGNESIUM OXIDE (MAGNESIUM OXIDE) [Concomitant]
  9. ZOPICLONE (ZOPICLONE) [Concomitant]
  10. SODIUM PICOSULFATE (SODIUM PICOSULFATE) [Concomitant]

REACTIONS (6)
  - ANAL STENOSIS [None]
  - ARTIFICIAL ANUS [None]
  - CONDITION AGGRAVATED [None]
  - ILEUS [None]
  - MARKEDLY REDUCED DIETARY INTAKE [None]
  - SICK SINUS SYNDROME [None]
